FAERS Safety Report 6268057-3 (Version None)
Quarter: 2009Q3

REPORT INFORMATION
  Report Type: 
  Country: None (occurrence: None)
  Receive Date: 20090713
  Receipt Date: 20090629
  Transmission Date: 20100115
  Serious: Yes (Life-Threatening, Hospitalization, Other)
  Sender: FDA-Public Use
  Company Number: CIP09001672

PATIENT
  Age: 61 Year
  Sex: Female

DRUGS (4)
  1. RISEDRONATE SODIUM [Suspect]
     Indication: OSTEOPOROSIS
     Dosage: 17.5 MG ONCE WEEKLY, ORAL
     Route: 048
     Dates: start: 20081107, end: 20090530
  2. OLMESARTAN MEDOXOMIL [Concomitant]
  3. GASTER /00706001/ (FAMOTIDINE) [Concomitant]
  4. CONIEL (BENIDIPINE HYDROCHLORIDE) [Concomitant]

REACTIONS (7)
  - COLD SWEAT [None]
  - CONVULSION [None]
  - DYSPNOEA [None]
  - HYPOCALCAEMIA [None]
  - MUSCULOSKELETAL STIFFNESS [None]
  - TETANY [None]
  - TRISMUS [None]
